FAERS Safety Report 6051185-5 (Version None)
Quarter: 2009Q1

REPORT INFORMATION
  Report Type: 
  Country: None (occurrence: None)
  Receive Date: 20090126
  Receipt Date: 20090121
  Transmission Date: 20090719
  Serious: Yes (Death, Other)
  Sender: FDA-Public Use
  Company Number: US-ABBOTT-09P-163-0499002-00

PATIENT
  Sex: Female
  Weight: 47.67 kg

DRUGS (4)
  1. HUMIRA [Suspect]
     Indication: RHEUMATOID ARTHRITIS
     Route: 058
     Dates: start: 20080701, end: 20081227
  2. HUMIRA [Suspect]
     Indication: COLITIS ULCERATIVE
  3. VARIOUS MEDICATIONS (MANY) [Concomitant]
     Indication: COLITIS ULCERATIVE
     Dosage: DAILY
     Dates: end: 20081227
  4. VARIOUS MEDICATIONS (MANY) [Concomitant]
     Indication: BRAIN INJURY

REACTIONS (4)
  - ASPIRATION [None]
  - CARDIAC ARREST [None]
  - OBSTRUCTION GASTRIC [None]
  - VOMITING [None]
